FAERS Safety Report 4709191-6 (Version None)
Quarter: 2005Q3

REPORT INFORMATION
  Report Type: 
  Country: None (occurrence: None)
  Receive Date: 20050705
  Receipt Date: 20050620
  Transmission Date: 20060218
  Serious: Yes (Other)
  Sender: FDA-Public Use
  Company Number: 2005071384

PATIENT
  Sex: Female

DRUGS (3)
  1. NEURONTIN [Suspect]
     Indication: DIABETIC NEUROPATHY
     Dosage: 300 MG (100 MG, 3 IN 1 D); UNKNOWN
     Route: 065
  2. PROCARDIA [Concomitant]
  3. LIPITOR [Concomitant]

REACTIONS (3)
  - CONDITION AGGRAVATED [None]
  - DIABETIC NEUROPATHY [None]
  - HIP ARTHROPLASTY [None]
